FAERS Safety Report 9469327 (Version 3)
Quarter: 2013Q3

REPORT INFORMATION
  Report Type: Spontaneous
  Country: US (occurrence: None)
  Receive Date: 20130815
  Receipt Date: 20130925
  Transmission Date: 20140515
  Serious: Yes (Other)
  Sender: FDA-Public Use
  Company Number: AUR-APL-2013-06591

PATIENT
  Age: 50 Year
  Sex: Female
  Weight: 49.89 kg

DRUGS (10)
  1. LISINOPRIL (LISINOPRIL) [Suspect]
     Indication: PRODUCT USED FOR UNKNOWN INDICATION
     Dosage: HALF TABLET EVERY 12 HOURS, ORAL
     Route: 048
     Dates: start: 201211
  2. METOPROLOL (METOPROLOL) [Suspect]
     Dosage: 50 MG (25 MG, 2 IN 1 D)
     Dates: start: 201211
  3. CYCLOBENZAPRINE (CYCLOBENZAPRINE) [Suspect]
     Dosage: 30 MG (10 MG, 3 IN 1 D)
     Dates: start: 201211
  4. XANAX (ALPRAZOLAM) [Suspect]
     Dates: start: 201211
  5. LIPITOR (ATORVASTATIN CALCIUM) [Suspect]
     Dates: start: 201211
  6. MAGNESIUM (MAGNESIUM) [Suspect]
     Dosage: TWO IN MORNING AND ONE IN AFTERNOON, ORAL
     Route: 048
     Dates: start: 201211
  7. DILANTIN [Suspect]
     Dosage: 200 MG (100 MG, 2 IN 1 D)
     Dates: start: 201211, end: 2013
  8. ASPIRIN (ACETYLSALICYLIC ACID) [Suspect]
     Dates: start: 201211
  9. TORADOL (KETOROLAC TROMETHAMINE) [Suspect]
     Dates: start: 201211
  10. LORTAB [Suspect]
     Dates: start: 201211

REACTIONS (7)
  - Convulsion [None]
  - Incorrect dose administered [None]
  - Wrong technique in drug usage process [None]
  - Diarrhoea [None]
  - Drug level decreased [None]
  - Drug ineffective [None]
  - Anxiety [None]
